FAERS Safety Report 9158319 (Version 2)
Quarter: 2013Q2

REPORT INFORMATION
  Report Type: Report from Study
  Country: GB (occurrence: GB)
  Receive Date: 20130312
  Receipt Date: 20130419
  Transmission Date: 20140414
  Serious: Yes (Other)
  Sender: FDA-Public Use
  Company Number: GB-ROCHE-1199999

PATIENT
  Age: 73 Year
  Sex: Female

DRUGS (2)
  1. RITUXIMAB [Suspect]
     Indication: RHEUMATOID ARTHRITIS
     Dosage: LAST DOSE PRIOR TO SAE 14/NOV/2012
     Route: 065
     Dates: start: 20100513
  2. METHOTREXATE [Concomitant]

REACTIONS (1)
  - Basal cell carcinoma [Recovered/Resolved with Sequelae]
